FAERS Safety Report 9875951 (Version 2)
Quarter: 2014Q2

REPORT INFORMATION
  Report Type: Spontaneous
  Country: SE (occurrence: None)
  Receive Date: 20140204
  Receipt Date: 20140522
  Transmission Date: 20141212
  Serious: Yes (Hospitalization, Congenital Anomaly)
  Sender: FDA-Public Use
  Company Number: AUR-APL-2014-01011

PATIENT
  Sex: Female
  Weight: 4.01 kg

DRUGS (1)
  1. SERTRALINE (SERTRALINE) [Suspect]
     Indication: PRODUCT USED FOR UNKNOWN INDICATION
     Dosage: 1 IN 1 D, TRANSPLACENTAL
     Route: 064

REACTIONS (7)
  - Foetal exposure during pregnancy [None]
  - Feeding disorder neonatal [None]
  - Ventricular septal defect [None]
  - Maternal drugs affecting foetus [None]
  - Congenital anomaly [None]
  - Neonatal respiratory distress syndrome [None]
  - Atrial septal defect [None]
